FAERS Safety Report 10510962 (Version 2)
Quarter: 2015Q2

REPORT INFORMATION
  Report Type: Spontaneous
  Country: US (occurrence: US)
  Receive Date: 20141010
  Receipt Date: 20150414
  Transmission Date: 20150821
  Serious: Yes (Other)
  Sender: FDA-Public Use
  Company Number: US-BAYER-2014-149974

PATIENT
  Age: 26 Year
  Sex: Female

DRUGS (2)
  1. BEYAZ [Suspect]
     Active Substance: DROSPIRENONE\ETHINYL ESTRADIOL\LEVOMEFOLATE CALCIUM
     Dosage: UNK
     Dates: start: 20120504, end: 20120803
  2. FLUCONAZOLE. [Concomitant]
     Active Substance: FLUCONAZOLE
     Dosage: 150 MG, UNK
     Dates: start: 20120623

REACTIONS (8)
  - Deep vein thrombosis [None]
  - Pain [None]
  - Emotional distress [None]
  - Injury [None]
  - Fear of death [None]
  - Nervousness [None]
  - Thrombophlebitis superficial [None]
  - Depression [None]

NARRATIVE: CASE EVENT DATE: 20120731
